FAERS Safety Report 13503949 (Version 2)
Quarter: 2017Q2

REPORT INFORMATION
  Report Type: Spontaneous
  Country: PT (occurrence: PT)
  Receive Date: 20170502
  Receipt Date: 20170518
  Transmission Date: 20170830
  Serious: Yes (Hospitalization, Other)
  Sender: FDA-Public Use
  Company Number: PT-BAYER-2017-079887

PATIENT
  Age: 68 Year
  Sex: Male

DRUGS (2)
  1. XOFIGO [Suspect]
     Active Substance: RADIUM RA-223 DICHLORIDE
     Indication: METASTASES TO BONE
     Dosage: UNK
     Route: 042
     Dates: start: 201702, end: 201702
  2. XOFIGO [Suspect]
     Active Substance: RADIUM RA-223 DICHLORIDE
     Indication: HORMONE-REFRACTORY PROSTATE CANCER
     Dosage: UNK
     Dates: start: 201611

REACTIONS (4)
  - Pain [None]
  - Skin ulcer [Recovering/Resolving]
  - General physical health deterioration [None]
  - Osteomyelitis [Recovering/Resolving]
